FAERS Safety Report 6736546-0 (Version None)
Quarter: 2010Q2

REPORT INFORMATION
  Report Type: 
  Country: None (occurrence: None)
  Receive Date: 20100519
  Receipt Date: 20100501
  Transmission Date: 20101027
  Serious: Yes (Hospitalization)
  Sender: FDA-Public Use
  Company Number: 2010050009

PATIENT
  Age: 51 Year
  Sex: Female

DRUGS (10)
  1. TORSEMIDE [Suspect]
     Dosage: 20 MG (20 MG, 1 IN 1 D), ORAL
     Route: 048
  2. COZAAR [Suspect]
     Dosage: 100 MG, (100 MG, 1 IN 1 D), ORAL
     Route: 048
  3. ALDACTONE [Suspect]
     Dosage: 50 MG (50 MG, 1 IN 1 D), ORAL
     Route: 048
  4. BACTRIM [Suspect]
     Dates: start: 20100407, end: 20100415
  5. ASPIRIN [Concomitant]
  6. CARVEDILOL [Concomitant]
  7. DIGOXIN [Concomitant]
  8. SINTROM [Concomitant]
  9. DALACIN (CLINDAMYCIN) [Concomitant]
  10. BEBULIN VH IMMUNO [Concomitant]

REACTIONS (1)
  - RENAL FAILURE ACUTE [None]
